FAERS Safety Report 10146089 (Version 15)
Quarter: 2014Q4

REPORT INFORMATION
  Report Type: Report from Study
  Country: US (occurrence: US)
  Receive Date: 20140501
  Receipt Date: 20141125
  Transmission Date: 20150528
  Serious: Yes (Death, Hospitalization, Other)
  Sender: FDA-Public Use
  Company Number: US-ALEXION PHARMACEUTICALS INC.-A201401534

PATIENT

DRUGS (4)
  1. SOLIRIS [Suspect]
     Active Substance: ECULIZUMAB
     Dosage: 900 MG, QW
     Route: 042
  2. SOLIRIS [Suspect]
     Active Substance: ECULIZUMAB
     Dosage: 600 MG, UNK
     Route: 042
     Dates: start: 20141022
  3. SOLIRIS [Suspect]
     Active Substance: ECULIZUMAB
     Indication: PAROXYSMAL NOCTURNAL HAEMOGLOBINURIA
     Dosage: 900 MG, QW
     Route: 042
     Dates: start: 20080516
  4. SOLIRIS [Suspect]
     Active Substance: ECULIZUMAB
     Dosage: 900 MG, Q2W
     Route: 042

REACTIONS (20)
  - Unevaluable event [Unknown]
  - Pneumonia streptococcal [Unknown]
  - Rectal haemorrhage [Recovered/Resolved]
  - Epistaxis [Unknown]
  - Death [Fatal]
  - Respiratory failure [Unknown]
  - Peripheral swelling [Unknown]
  - Platelet count decreased [Unknown]
  - Lung infection [Recovering/Resolving]
  - Peripheral swelling [Not Recovered/Not Resolved]
  - Nasal disorder [Unknown]
  - Localised infection [Recovering/Resolving]
  - Oxygen saturation decreased [Unknown]
  - Renal failure [Unknown]
  - Pyrexia [Not Recovered/Not Resolved]
  - Incorrect drug administration duration [Recovered/Resolved]
  - Inappropriate schedule of drug administration [Unknown]
  - Kidney infection [Unknown]
  - Lymphoedema [Not Recovered/Not Resolved]
  - Haemolysis [Unknown]

NARRATIVE: CASE EVENT DATE: 20140522
